FAERS Safety Report 11886590 (Version 1)
Quarter: 2016Q1

REPORT INFORMATION
  Report Type: Spontaneous
  Country: US (occurrence: US)
  Receive Date: 20160104
  Receipt Date: 20160104
  Transmission Date: 20160526
  Serious: No
  Sender: FDA-Public Use
  Company Number: US-PFIZER INC-2015477645

PATIENT
  Age: 71 Year
  Sex: Male
  Weight: 72 kg

DRUGS (1)
  1. VIAGRA [Suspect]
     Active Substance: SILDENAFIL CITRATE
     Indication: ERECTILE DYSFUNCTION
     Dosage: 50 MG (100 MG TABLET, HALF TABLET, OR 50 MG AT A TIME), UNK
     Route: 048

REACTIONS (1)
  - Night blindness [Not Recovered/Not Resolved]

NARRATIVE: CASE EVENT DATE: 2015
